FAERS Safety Report 23846099 (Version 2)
Quarter: 2024Q2

REPORT INFORMATION
  Report Type: Other
  Country: US (occurrence: US)
  Receive Date: 20240512
  Receipt Date: 20240620
  Transmission Date: 20240716
  Serious: No
  Sender: FDA-Public Use
  Company Number: US-TRAVERE-2024TVT00438

PATIENT
  Age: 79 Year
  Sex: Female

DRUGS (1)
  1. FILSPARI [Suspect]
     Active Substance: SPARSENTAN
     Indication: IgA nephropathy
     Dosage: 200MG 2 TABLETS DAILY (400MG)
     Route: 048
     Dates: start: 20240423

REACTIONS (3)
  - Nausea [Recovered/Resolved]
  - Dizziness [None]
  - Blood pressure increased [Unknown]

NARRATIVE: CASE EVENT DATE: 20240423
